FAERS Safety Report 23196291 (Version 4)
Quarter: 2024Q1

REPORT INFORMATION
  Report Type: Spontaneous
  Country: UA (occurrence: UA)
  Receive Date: 20231117
  Receipt Date: 20240109
  Transmission Date: 20240410
  Serious: Yes (Hospitalization, Other)
  Sender: FDA-Public Use
  Company Number: UA-002147023-NVSC2023UA242472

PATIENT
  Age: 68 Year
  Sex: Female

DRUGS (6)
  1. KISQALI [Suspect]
     Active Substance: RIBOCICLIB
     Indication: Breast cancer metastatic
     Dosage: 600 MG (1 PER DAY  21 DAYS  PER MONTH) (DISCONTINUED AFTER 2 CYCLES)
     Route: 048
     Dates: start: 202308, end: 202310
  2. ARIMIDEX [Concomitant]
     Active Substance: ANASTROZOLE
     Indication: Breast cancer metastatic
     Dosage: 1 MG, QD
     Route: 048
     Dates: start: 202308, end: 202310
  3. ZOLEDRONIC ACID [Concomitant]
     Active Substance: ZOLEDRONIC ACID
     Indication: Metastases to bone
     Dosage: 4 MG, QD (28 DAYS)
     Route: 042
     Dates: start: 202308, end: 202310
  4. ZOLEDRONIC ACID [Concomitant]
     Active Substance: ZOLEDRONIC ACID
     Indication: Breast cancer metastatic
  5. CAD3 [Concomitant]
     Indication: Metastases to bone
     Dosage: UNK UNK, QD (CA-1000 MG + D3 2000 IU 1 PER DAY FOR 2 MONTHS)
     Route: 048
     Dates: start: 202308, end: 202310
  6. CAD3 [Concomitant]
     Indication: Breast cancer metastatic

REACTIONS (4)
  - Acute kidney injury [Recovered/Resolved]
  - Chronic kidney disease [Unknown]
  - Tubulointerstitial nephritis [Unknown]
  - Anaemia [Unknown]

NARRATIVE: CASE EVENT DATE: 20231101
